FAERS Safety Report 6026984-6 (Version None)
Quarter: 2009Q1

REPORT INFORMATION
  Report Type: 
  Country: None (occurrence: None)
  Receive Date: 20090105
  Receipt Date: 20081221
  Transmission Date: 20090719
  Serious: Yes (Other)
  Sender: FDA-Public Use
  Company Number: AU-PFIZER INC-2008094941

PATIENT

DRUGS (1)
  1. CHAMPIX [Suspect]

REACTIONS (2)
  - DEPRESSION [None]
  - SELF-INJURIOUS IDEATION [None]
